FAERS Safety Report 21217034 (Version 1)
Quarter: 2022Q3

REPORT INFORMATION
  Report Type: Spontaneous
  Country: US (occurrence: None)
  Receive Date: 20220815
  Receipt Date: 20220815
  Transmission Date: 20221027
  Serious: No
  Sender: FDA-Public Use
  Company Number: None

PATIENT
  Age: 31 Year
  Sex: Male

DRUGS (1)
  1. DESCOVY [Suspect]
     Active Substance: EMTRICITABINE\TENOFOVIR ALAFENAMIDE FUMARATE
     Indication: Exposure to body fluid
     Dosage: TAKE 1 TABLET BY MOUTH DAILY  FOR PREP AS DIRECTED   ?
     Route: 048
     Dates: start: 202201

REACTIONS (1)
  - Rectal haemorrhage [None]
